FAERS Safety Report 26186316 (Version 1)
Quarter: 2025Q4

REPORT INFORMATION
  Report Type: Spontaneous
  Country: EU (occurrence: EU)
  Receive Date: 20251222
  Receipt Date: 20251222
  Transmission Date: 20260117
  Serious: Yes (Death, Other)
  Sender: ROCHE
  Company Number: EU-ROCHE-10000464485

PATIENT
  Age: 72 Year
  Sex: Male

DRUGS (8)
  1. MYCOPHENOLATE MOFETIL [Suspect]
     Active Substance: MYCOPHENOLATE MOFETIL
     Indication: Prophylaxis against transplant rejection
  2. MYCOPHENOLATE MOFETIL [Suspect]
     Active Substance: MYCOPHENOLATE MOFETIL
     Indication: Myelodysplastic syndrome
  3. BASILIXIMAB [Suspect]
     Active Substance: BASILIXIMAB
     Indication: Prophylaxis against transplant rejection
  4. BASILIXIMAB [Suspect]
     Active Substance: BASILIXIMAB
     Indication: Myelodysplastic syndrome
  5. TACROLIMUS [Suspect]
     Active Substance: TACROLIMUS
     Indication: Prophylaxis against transplant rejection
  6. TACROLIMUS [Suspect]
     Active Substance: TACROLIMUS
     Indication: Myelodysplastic syndrome
  7. PREDNISONE [Suspect]
     Active Substance: PREDNISONE
     Indication: Prophylaxis against transplant rejection
  8. PREDNISONE [Suspect]
     Active Substance: PREDNISONE
     Indication: Myelodysplastic syndrome

REACTIONS (7)
  - Staphylococcal bacteraemia [Unknown]
  - Endocarditis staphylococcal [Unknown]
  - Acute myeloid leukaemia [Fatal]
  - Pulmonary sepsis [Unknown]
  - Pneumonia fungal [Unknown]
  - Pneumonia bacterial [Unknown]
  - Acute respiratory failure [Unknown]
